FAERS Safety Report 12635910 (Version 3)
Quarter: 2016Q3

REPORT INFORMATION
  Report Type: Spontaneous
  Country: US (occurrence: US)
  Receive Date: 20160809
  Receipt Date: 20160914
  Transmission Date: 20161109
  Serious: No
  Sender: FDA-Public Use
  Company Number: US-PFIZER INC-2016374194

PATIENT
  Age: 47 Year
  Sex: Male

DRUGS (3)
  1. LYRICA [Suspect]
     Active Substance: PREGABALIN
     Indication: DIABETIC NEUROPATHY
     Dosage: 75 MG, 2X/DAY, ONE IN THE MORNING AND ONE AT NIGHT
     Route: 048
  2. LYRICA [Suspect]
     Active Substance: PREGABALIN
     Dosage: 150 MG, 2X/DAY (TAKING TWO CAPSULES OF 75MG EACH IN THE MORNING AND 2 CAPSULES OF 75MG AT NIGHT)
  3. DULOXETINE. [Concomitant]
     Active Substance: DULOXETINE
     Indication: NEURALGIA
     Dosage: 60 MG, 1X/DAY
     Dates: start: 201607

REACTIONS (3)
  - Back pain [Unknown]
  - Intentional product misuse [Unknown]
  - Condition aggravated [Unknown]

NARRATIVE: CASE EVENT DATE: 20160728
